FAERS Safety Report 4753484-3 (Version None)
Quarter: 2005Q3

REPORT INFORMATION
  Report Type: 
  Country: None (occurrence: None)
  Receive Date: 20050824
  Receipt Date: 20050817
  Transmission Date: 20060218
  Serious: Yes (Other)
  Sender: FDA-Public Use
  Company Number: VISP-PR-0508S-0430

PATIENT
  Sex: Male

DRUGS (2)
  1. VISIPAQUE [Suspect]
     Dosage: SINGLE DOSE, I.A.
     Dates: start: 20050101, end: 20050101
  2. INTEGRILIN [Concomitant]

REACTIONS (1)
  - PLATELET COUNT DECREASED [None]
